FAERS Safety Report 9296936 (Version 2)
Quarter: 2013Q3

REPORT INFORMATION
  Report Type: Report from Study
  Country: CA (occurrence: CA)
  Receive Date: 20130518
  Receipt Date: 20130723
  Transmission Date: 20140515
  Serious: No
  Sender: FDA-Public Use
  Company Number: CA-ROCHE-1226062

PATIENT
  Sex: Female
  Weight: 63.5 kg

DRUGS (4)
  1. ACTEMRA [Suspect]
     Indication: RHEUMATOID ARTHRITIS
     Route: 042
     Dates: start: 20121003, end: 20130415
  2. BETAMETHASONE [Concomitant]
  3. ADVIL [Concomitant]
  4. VITAMIN E [Concomitant]

REACTIONS (4)
  - Road traffic accident [Unknown]
  - Drug hypersensitivity [Unknown]
  - Pyrexia [Recovered/Resolved]
  - Palpitations [Unknown]
